FAERS Safety Report 9049102 (Version 4)
Quarter: 2013Q2

REPORT INFORMATION
  Report Type: Report from Study
  Country: IT (occurrence: IT)
  Receive Date: 20130205
  Receipt Date: 20130425
  Transmission Date: 20140414
  Serious: Yes (Death)
  Sender: FDA-Public Use
  Company Number: IT-CELGENEUS-083-21880-13014825

PATIENT
  Age: 96 Year
  Sex: Female
  Weight: 45 kg

DRUGS (16)
  1. REVLIMID [Suspect]
     Indication: PLASMA CELL MYELOMA
     Dosage: 15 MILLIGRAM
     Route: 048
     Dates: start: 20110707, end: 20110727
  2. REVLIMID [Suspect]
     Dosage: 7.5 MILLIGRAM
     Route: 048
     Dates: start: 20111026, end: 20120123
  3. REVLIMID [Suspect]
     Dosage: 2.5 MILLIGRAM
     Route: 048
     Dates: start: 20120214, end: 20120307
  4. REVLIMID [Suspect]
     Dosage: 5 MILLIGRAM
     Route: 048
     Dates: start: 20120427, end: 20121220
  5. DEXAMETHASONE [Suspect]
     Indication: PLASMA CELL MYELOMA
     Dosage: MONTHLY
     Route: 048
     Dates: start: 20110707, end: 20110818
  6. DEXAMETHASONE [Suspect]
     Dosage: MONTHLY
     Route: 048
     Dates: start: 20110819, end: 20120213
  7. DEXAMETHASONE [Suspect]
     Dosage: MONTHLY
     Route: 048
     Dates: start: 20120214, end: 20120307
  8. DEXAMETHASONE [Suspect]
     Dosage: MONTHLY
     Route: 048
     Dates: start: 20120308, end: 20120426
  9. DEXAMETHASONE [Suspect]
     Dosage: MONTHLY
     Route: 048
     Dates: start: 20120427, end: 20120528
  10. DEXAMETHASONE [Suspect]
     Dosage: MONTHLY
     Route: 048
     Dates: start: 20120529, end: 20120625
  11. DEXAMETHASONE [Suspect]
     Dosage: MONTHLY
     Route: 048
     Dates: start: 20120821, end: 20120926
  12. DEXAMETHASONE [Suspect]
     Dosage: MONTHLY
     Route: 048
     Dates: start: 20120927, end: 20121024
  13. DEXAMETHASONE [Suspect]
     Dosage: MONTHLY
     Route: 048
     Dates: start: 20121207, end: 20121220
  14. DEXAMETHASONE [Suspect]
     Dosage: 2.6667 MILLIGRAM
     Route: 048
     Dates: start: 20121025, end: 20121122
  15. TIKLID [Concomitant]
     Indication: PERIPHERAL ARTERIAL OCCLUSIVE DISEASE
     Dosage: 250 MILLIGRAM
     Route: 048
     Dates: start: 20100815, end: 20121220
  16. TIKLID [Concomitant]
     Indication: THROMBOSIS PROPHYLAXIS

REACTIONS (1)
  - Intestinal infarction [Fatal]
